FAERS Safety Report 21799643 (Version 2)
Quarter: 2023Q1

REPORT INFORMATION
  Report Type: Report from Study
  Country: US (occurrence: US)
  Receive Date: 20221230
  Receipt Date: 20230317
  Transmission Date: 20230418
  Serious: No
  Sender: FDA-Public Use
  Company Number: US-ABBVIE-4208986

PATIENT
  Age: 59 Year
  Sex: Female
  Weight: 92.532 kg

DRUGS (7)
  1. RINVOQ [Suspect]
     Active Substance: UPADACITINIB
     Indication: Headache
     Route: 048
     Dates: start: 20220913
  2. RINVOQ [Suspect]
     Active Substance: UPADACITINIB
     Indication: Headache
     Route: 048
     Dates: start: 20220719, end: 20220912
  3. TYLENOL [Concomitant]
     Active Substance: ACETAMINOPHEN
     Indication: Osteoarthritis
  4. APRISO [Concomitant]
     Active Substance: MESALAMINE
     Indication: Colitis ulcerative
     Dosage: 0.375 G
     Route: 048
     Dates: start: 202209
  5. GABAPENTIN [Concomitant]
     Active Substance: GABAPENTIN
     Indication: Meralgia paraesthetica
     Dosage: 500 MG
     Route: 048
  6. SPIRONOLACTONE [Concomitant]
     Active Substance: SPIRONOLACTONE
     Indication: Hypertension
     Dosage: 50 MG
     Route: 048
  7. PHENTERMINE [Concomitant]
     Active Substance: PHENTERMINE
     Indication: Weight decreased
     Dosage: 3.75 MG
     Dates: start: 202204

REACTIONS (1)
  - Headache [Recovering/Resolving]

NARRATIVE: CASE EVENT DATE: 20220801
